FAERS Safety Report 7137943-4 (Version None)
Quarter: 2010Q4

REPORT INFORMATION
  Report Type: 
  Country: None (occurrence: None)
  Receive Date: 20101103
  Receipt Date: 20100414
  Transmission Date: 20110411
  Serious: Yes (Other)
  Sender: FDA-Public Use
  Company Number: US-WYE-H14705910

PATIENT
  Age: 29 Year
  Sex: Male

DRUGS (1)
  1. EFFEXOR XR [Suspect]
     Dosage: DISPENSED 150 MG RATHER THAN THE PRESCRIBED 75 MG

REACTIONS (2)
  - DRUG DISPENSING ERROR [None]
  - PSYCHOMOTOR HYPERACTIVITY [None]
